FAERS Safety Report 4754744-2 (Version None)
Quarter: 2005Q3

REPORT INFORMATION
  Report Type: 
  Country: None (occurrence: None)
  Receive Date: 20050826
  Receipt Date: 20030618
  Transmission Date: 20060218
  Serious: Yes (Death)
  Sender: FDA-Public Use
  Company Number: USA-2003-0007267

PATIENT
  Age: 27 Year
  Sex: Male
  Weight: 90.7 kg

DRUGS (11)
  1. OXYCODONE HCL [Suspect]
  2. HYDROCODONE BITARTRATE [Suspect]
  3. FENTANYL [Suspect]
  4. METHYLENEDIOXYAMPHETAMINE (METHYLENEDIOXYAMPHETAMINE) [Suspect]
  5. ACETAMINOPHEN [Suspect]
  6. MEPROBAMATE [Suspect]
  7. CAFFEINE (CAFFEINE) [Suspect]
  8. BENZODIAZEPINE DERIVATIVES [Suspect]
  9. NICOTINE [Suspect]
  10. VALPROIC ACID [Suspect]
  11. ALPRAZOLAM [Suspect]

REACTIONS (2)
  - ACCIDENTAL OVERDOSE [None]
  - MULTIPLE DRUG OVERDOSE [None]
